FAERS Safety Report 21361304 (Version 2)
Quarter: 2023Q1

REPORT INFORMATION
  Report Type: Report from Study
  Country: CA (occurrence: CA)
  Receive Date: 20220921
  Receipt Date: 20230308
  Transmission Date: 20230417
  Serious: Yes (Hospitalization)
  Sender: FDA-Public Use
  Company Number: CA-BAUSCH-BL-2022-022247

PATIENT
  Age: 22 Year
  Sex: Female

DRUGS (9)
  1. ALBUTEROL [Suspect]
     Active Substance: ALBUTEROL
     Indication: Product used for unknown indication
     Dosage: NOT SPECIFIED
     Route: 055
  2. OMALIZUMAB [Suspect]
     Active Substance: OMALIZUMAB
     Indication: Chronic spontaneous urticaria
     Dosage: NOT SPECIFIED
     Route: 058
  3. OMALIZUMAB [Suspect]
     Active Substance: OMALIZUMAB
     Route: 058
  4. BENADRYL [Concomitant]
     Active Substance: DIPHENHYDRAMINE HYDROCHLORIDE
     Indication: Chronic spontaneous urticaria
     Dosage: NOT SPECIFIED
     Route: 048
  5. BUDESONIDE\FORMOTEROL FUMARATE [Concomitant]
     Active Substance: BUDESONIDE\FORMOTEROL FUMARATE
     Indication: Product used for unknown indication
  6. PREDNISONE [Concomitant]
     Active Substance: PREDNISONE
     Indication: Chronic spontaneous urticaria
     Dosage: NOT SPECIFIED
     Route: 048
  7. REACTINE [Concomitant]
     Indication: Chronic spontaneous urticaria
     Dosage: NOT SPECIFIED
     Route: 048
  8. SINGULAIR [Concomitant]
     Active Substance: MONTELUKAST SODIUM
     Indication: Product used for unknown indication
     Dosage: NOT SPECIFIED
  9. SPIRIVA [Concomitant]
     Active Substance: TIOTROPIUM BROMIDE MONOHYDRATE
     Indication: Product used for unknown indication
     Dosage: NOT SPECIFIED

REACTIONS (14)
  - Abdominal distension [Unknown]
  - Asthma [Unknown]
  - Decreased appetite [Unknown]
  - Dyspnoea [Unknown]
  - General physical health deterioration [Unknown]
  - Pruritus [Unknown]
  - Sleep disorder [Unknown]
  - Stress [Unknown]
  - Swelling [Unknown]
  - Swelling face [Unknown]
  - Wheezing [Unknown]
  - Angioedema [Unknown]
  - Anxiety [Unknown]
  - Urticaria [Unknown]
